FAERS Safety Report 7015231-4 (Version None)
Quarter: 2010Q3

REPORT INFORMATION
  Report Type: 
  Country: None (occurrence: None)
  Receive Date: 20100927
  Receipt Date: 20100917
  Transmission Date: 20110219
  Serious: Yes (Hospitalization)
  Sender: FDA-Public Use
  Company Number: FR-ROCHE-698992

PATIENT
  Sex: Male
  Weight: 74 kg

DRUGS (8)
  1. BEVACIZUMAB [Suspect]
     Indication: RECTAL CANCER
     Dosage: DRUG NAME: BEVACIZUMAB 25 MG/ML
     Route: 042
     Dates: start: 20091119, end: 20091228
  2. FLUOROURACIL [Suspect]
     Indication: RECTAL CANCER
     Dosage: FREQUENCY: 5 DAYS PER WEEK, DATE OF LAST DOSE PRIOR TO SAE: 08 JAN 2010
     Route: 042
     Dates: start: 20091130
  3. FLUOROURACIL [Suspect]
     Dosage: FREQUENCY: 5 DAYS PER WEEK. DRUG:5FU 50 MG/ML
     Route: 042
     Dates: start: 20091207, end: 20100108
  4. CORDARONE [Concomitant]
     Dates: start: 20091219, end: 20100326
  5. CORDARONE [Concomitant]
     Dates: start: 20100503
  6. ANTICOAGULANT NOS [Concomitant]
     Dosage: DRUG: ANTI VITAMINE K
     Dates: start: 20100301
  7. ATENOLOL [Concomitant]
     Dates: start: 20100112
  8. PREVISCAN [Concomitant]
     Dates: start: 20100301

REACTIONS (2)
  - ANASTOMOTIC FISTULA [None]
  - WERNICKE'S ENCEPHALOPATHY [None]
